FAERS Safety Report 7118306-4 (Version None)
Quarter: 2010Q4

REPORT INFORMATION
  Report Type: 
  Country: None (occurrence: None)
  Receive Date: 20101123
  Receipt Date: 20101112
  Transmission Date: 20110411
  Serious: Yes (Other)
  Sender: FDA-Public Use
  Company Number: LV-JNJFOC-20101105697

PATIENT
  Age: 20 Year
  Sex: Male

DRUGS (1)
  1. VERMOX [Suspect]
     Indication: TAENIASIS
     Dosage: TWO TABLETS TWICE DAILY, THERAPY COURSE FOR 3 DAYS
     Route: 048

REACTIONS (1)
  - TYPE 1 DIABETES MELLITUS [None]
